FAERS Safety Report 8902771 (Version 1)
Quarter: 2012Q4

REPORT INFORMATION
  Report Type: 
  Country: US (occurrence: US)
  Receive Date: 20121112
  Receipt Date: 20121112
  Transmission Date: 20130627
  Serious: Yes (Hospitalization)
  Sender: FDA-Public Use
  Company Number: US-AMGEN-USASP2012071363

PATIENT
  Age: 59 Year
  Sex: Male

DRUGS (1)
  1. ENBREL [Suspect]
     Indication: PSORIATIC ARTHROPATHY
     Dosage: UNK UNK, qwk
     Dates: start: 2009, end: 201210

REACTIONS (8)
  - Diabetes mellitus [Unknown]
  - Fatigue [Unknown]
  - Thirst [Unknown]
  - Gait disturbance [Unknown]
  - Dysstasia [Unknown]
  - Arthritis [Not Recovered/Not Resolved]
  - Nasopharyngitis [Unknown]
  - Anaemia [Not Recovered/Not Resolved]
